FAERS Safety Report 14237917 (Version 2)
Quarter: 2017Q4

REPORT INFORMATION
  Report Type: Spontaneous
  Country: DE (occurrence: DE)
  Receive Date: 20171130
  Receipt Date: 20171211
  Transmission Date: 20180321
  Serious: Yes (Other)
  Sender: FDA-Public Use
  Company Number: DE-009507513-1711DEU012335

PATIENT
  Sex: Female

DRUGS (1)
  1. KEYTRUDA [Suspect]
     Active Substance: PEMBROLIZUMAB
     Indication: NON-SMALL CELL LUNG CANCER
     Dosage: UNK, CYCLICAL

REACTIONS (3)
  - Pericardial effusion [Unknown]
  - Atrial fibrillation [Unknown]
  - Pericardial disease [Unknown]

NARRATIVE: CASE EVENT DATE: 20171128
